FAERS Safety Report 12893181 (Version 2)
Quarter: 2016Q4

REPORT INFORMATION
  Report Type: Report from Study
  Country: US (occurrence: US)
  Receive Date: 20161028
  Receipt Date: 20161212
  Transmission Date: 20170207
  Serious: Yes (Death, Hospitalization)
  Sender: FDA-Public Use
  Company Number: GXBR2016US003215

PATIENT
  Sex: Female
  Weight: 91.61 kg

DRUGS (4)
  1. ZARXIO [Suspect]
     Active Substance: FILGRASTIM-SNDZ
     Indication: NEUTROPENIA
     Dosage: 480UG INJECTION STAT
     Route: 065
     Dates: start: 20160817
  2. FLUOROURACIL. [Concomitant]
     Active Substance: FLUOROURACIL
     Indication: COLON CANCER METASTATIC
     Dosage: UNK DF, UNK
     Route: 065
  3. OXALIPLATIN. [Concomitant]
     Active Substance: OXALIPLATIN
     Indication: COLON CANCER METASTATIC
     Dosage: UNK DF, UNK
     Route: 065
  4. FOLINIC ACID [Concomitant]
     Active Substance: LEUCOVORIN
     Indication: COLON CANCER METASTATIC
     Dosage: UNK DF, UNK
     Route: 065

REACTIONS (5)
  - Colon cancer metastatic [Fatal]
  - Septic shock [Fatal]
  - Hypotension [Fatal]
  - Neutropenia [Fatal]
  - Anaemia [Fatal]
